FAERS Safety Report 7786546-7 (Version None)
Quarter: 2011Q3

REPORT INFORMATION
  Report Type: 
  Country: None (occurrence: None)
  Receive Date: 20110929
  Receipt Date: 20110919
  Transmission Date: 20111222
  Serious: Yes (Hospitalization, Disabling, Other)
  Sender: FDA-Public Use
  Company Number: GB-GLAXOSMITHKLINE-B0739053A

PATIENT
  Sex: Female
  Weight: 66 kg

DRUGS (13)
  1. MOVIPREP [Concomitant]
  2. CEFALEXINE [Concomitant]
  3. FLIXONASE [Suspect]
     Indication: RHINITIS
     Route: 045
     Dates: start: 20060302, end: 20110627
  4. TRIMETHOPRIM [Concomitant]
  5. NITROFURANTOIN [Concomitant]
  6. BRIMONIDINE TARTRATE [Concomitant]
  7. TRAVOPROST [Concomitant]
  8. LANSOPRAZOLE [Concomitant]
  9. LOESTRIN 20 [Concomitant]
  10. PREDNISOLONE ACETATE [Concomitant]
  11. SENNA [Concomitant]
  12. ADCAL [Concomitant]
  13. TEGRETOL [Concomitant]
     Dosage: 200MG TWICE PER DAY

REACTIONS (7)
  - INTRAOCULAR PRESSURE INCREASED [None]
  - VISUAL ACUITY REDUCED [None]
  - GLAUCOMA [None]
  - FALL [None]
  - ANAEMIA [None]
  - EYE INJURY [None]
  - ABNORMAL SENSATION IN EYE [None]
